FAERS Safety Report 6408450-9 (Version None)
Quarter: 2009Q4

REPORT INFORMATION
  Report Type: 
  Country: None (occurrence: None)
  Receive Date: 20091021
  Receipt Date: 20091012
  Transmission Date: 20100525
  Serious: Yes (Other)
  Sender: FDA-Public Use
  Company Number: US-BAYER-200936112NA

PATIENT
  Age: 26 Year
  Sex: Female

DRUGS (1)
  1. MIRENA [Suspect]
     Indication: CONTRACEPTION
     Dosage: CONTINUOUS
     Route: 015
     Dates: start: 20090708

REACTIONS (5)
  - GARDNERELLA INFECTION [None]
  - PELVIC FLUID COLLECTION [None]
  - PELVIC INFECTION [None]
  - PELVIC PAIN [None]
  - SERRATIA INFECTION [None]
